FAERS Safety Report 4638693-6 (Version None)
Quarter: 2005Q2

REPORT INFORMATION
  Report Type: 
  Country: None (occurrence: None)
  Receive Date: 20050418
  Receipt Date: 20050418
  Transmission Date: 20051028
  Serious: Yes (Other)
  Sender: FDA-Public Use
  Company Number: None

PATIENT
  Age: 35 Year
  Sex: Female
  Weight: 71.6683 kg

DRUGS (2)
  1. LACTATED RINGER'S [Suspect]
     Dosage: 125 ML/HR
     Dates: start: 20050324
  2. CEFAZOLIN [Suspect]
     Dosage: 2GM IV X 1
     Route: 042
     Dates: start: 20050324

REACTIONS (2)
  - DRUG DISPENSING ERROR [None]
  - DYSPNOEA [None]
